FAERS Safety Report 11222719 (Version 1)
Quarter: 2015Q2

REPORT INFORMATION
  Report Type: Spontaneous
  Country: US (occurrence: US)
  Receive Date: 20150626
  Receipt Date: 20150626
  Transmission Date: 20150821
  Serious: Yes (Death, Other)
  Sender: FDA-Public Use
  Company Number: US-BAYER-2015-360385

PATIENT
  Age: 5 Month
  Sex: Female

DRUGS (2)
  1. MIRENA [Suspect]
     Active Substance: LEVONORGESTREL
     Route: 064
  2. MIRENA [Suspect]
     Active Substance: LEVONORGESTREL
     Route: 064

REACTIONS (5)
  - Umbilical cord vascular disorder [None]
  - Umbilical cord abnormality [Fatal]
  - Placental disorder [None]
  - Foetal exposure during pregnancy [None]
  - Foetal death [Fatal]

NARRATIVE: CASE EVENT DATE: 20121010
